FAERS Safety Report 8276166-2 (Version None)
Quarter: 2012Q2

REPORT INFORMATION
  Report Type: 
  Country: None (occurrence: None)
  Receive Date: 20120409
  Receipt Date: 20120402
  Transmission Date: 20120825
  Serious: Yes (Other)
  Sender: FDA-Public Use
  Company Number: WAES 1112USA01344

PATIENT
  Age: 74 Year
  Weight: 57.1532 kg

DRUGS (11)
  1. ZOCOR [Concomitant]
  2. LEVOTHYROXINE SODIUM [Concomitant]
  3. PLAVIX [Concomitant]
  4. SPIRONOLACTONE [Concomitant]
  5. TORSEMIDE [Concomitant]
  6. DECADRON [Suspect]
     Indication: MULTIPLE MYELOMA
     Dosage: 4 MG/WKY/PO
     Route: 048
     Dates: start: 20111003, end: 20111109
  7. REVLIMID [Suspect]
     Indication: MULTIPLE MYELOMA
     Dosage: 25 MG/DAILY/PO
     Route: 048
     Dates: start: 20111112, end: 20111123
  8. LISINOPRIL [Concomitant]
  9. PRILOSEC [Concomitant]
  10. NITROGLYCERIN [Concomitant]
  11. ASPIRIN [Concomitant]

REACTIONS (3)
  - HAEMOGLOBIN DECREASED [None]
  - GASTRITIS [None]
  - GASTROINTESTINAL HAEMORRHAGE [None]
